FAERS Safety Report 11686759 (Version 1)
Quarter: 2015Q4

REPORT INFORMATION
  Report Type: Spontaneous
  Country: CN (occurrence: CN)
  Receive Date: 20151030
  Receipt Date: 20151030
  Transmission Date: 20160304
  Serious: Yes (Hospitalization, Other)
  Sender: FDA-Public Use
  Company Number: CN-JNJFOC-20151017183

PATIENT
  Age: 6 Month
  Sex: Male
  Weight: 9.5 kg

DRUGS (4)
  1. TYLENOL [Suspect]
     Active Substance: ACETAMINOPHEN
     Indication: PYREXIA
     Route: 048
     Dates: start: 20150511, end: 20150513
  2. INTERFERON HUMAN [Suspect]
     Active Substance: INTERFERON
     Indication: UPPER RESPIRATORY TRACT INFECTION
     Dosage: 470000 U
     Route: 030
     Dates: start: 20150512, end: 20150516
  3. CEFTAZIDIME. [Suspect]
     Active Substance: CEFTAZIDIME
     Indication: UPPER RESPIRATORY TRACT INFECTION
     Route: 041
     Dates: start: 20150512, end: 20150516
  4. ZHENQI FUZHENG GRANULES [Concomitant]
     Indication: LEUKOPENIA
     Route: 048
     Dates: start: 20150512, end: 20150516

REACTIONS (1)
  - Granulocytopenia [Unknown]

NARRATIVE: CASE EVENT DATE: 20150514
